FAERS Safety Report 10476162 (Version 5)
Quarter: 2015Q3

REPORT INFORMATION
  Report Type: Spontaneous
  Country: US (occurrence: US)
  Receive Date: 20140925
  Receipt Date: 20150710
  Transmission Date: 20151125
  Serious: Yes (Death, Hospitalization, Other)
  Sender: FDA-Public Use
  Company Number: US-MERCK-1409USA012764

PATIENT
  Sex: Female
  Weight: 57.14 kg

DRUGS (1)
  1. JANUVIA [Suspect]
     Active Substance: SITAGLIPTIN PHOSPHATE
     Indication: TYPE 2 DIABETES MELLITUS
     Dosage: 100 MG, QD
     Route: 048
     Dates: start: 20081024, end: 20120925

REACTIONS (24)
  - Asthma [Unknown]
  - Injection site haematoma [Recovering/Resolving]
  - Cardiac murmur [Unknown]
  - Biliary dilatation [Unknown]
  - Back pain [Unknown]
  - Febrile neutropenia [Recovering/Resolving]
  - Hypothyroidism [Unknown]
  - Chest pain [Unknown]
  - Cholecystectomy [Unknown]
  - Hyperlipidaemia [Unknown]
  - Tremor [Unknown]
  - Leukocytosis [Unknown]
  - Breast operation [Unknown]
  - Dyspnoea exertional [Unknown]
  - Abdominal distension [Unknown]
  - Metastases to lymph nodes [Fatal]
  - Cardiac failure congestive [Fatal]
  - Diabetes mellitus inadequate control [Unknown]
  - Pulmonary mass [Unknown]
  - Pancreatic carcinoma metastatic [Fatal]
  - Pancreatitis [Unknown]
  - Eye operation [Unknown]
  - Anxiety [Unknown]
  - Blood glucose fluctuation [Unknown]

NARRATIVE: CASE EVENT DATE: 201212
